FAERS Safety Report 10236271 (Version 1)
Quarter: 2014Q2

REPORT INFORMATION
  Report Type: Spontaneous
  Country: IT (occurrence: IT)
  Receive Date: 20140613
  Receipt Date: 20140613
  Transmission Date: 20141212
  Serious: Yes (Hospitalization)
  Sender: FDA-Public Use
  Company Number: PHHY2014IT069435

PATIENT
  Age: 50 Year
  Sex: Female

DRUGS (3)
  1. AZITHROMYCIN [Suspect]
     Dosage: 1 DF, ONCE/SINGLE
     Route: 048
     Dates: start: 20140524, end: 20140524
  2. COLBIOCIN (OINTMENT) [Suspect]
     Dosage: 1 DF, ONCE/SINGLE
     Route: 047
     Dates: start: 20140524, end: 20140524
  3. FUROSEMIDE [Concomitant]

REACTIONS (4)
  - Erythema [Recovering/Resolving]
  - Face oedema [Recovering/Resolving]
  - Oedema peripheral [Recovering/Resolving]
  - Pruritus [Recovering/Resolving]
